FAERS Safety Report 10530854 (Version 1)
Quarter: 2014Q4

REPORT INFORMATION
  Report Type: Spontaneous
  Country: US (occurrence: None)
  Receive Date: 20141020
  Receipt Date: 20141020
  Transmission Date: 20150528
  Serious: Yes (Hospitalization)
  Sender: FDA-Public Use
  Company Number: None

PATIENT
  Age: 73 Year
  Sex: Female

DRUGS (28)
  1. DEXAMETHASONE. [Concomitant]
     Active Substance: DEXAMETHASONE
  2. ACYCLOVIR. [Concomitant]
     Active Substance: ACYCLOVIR
  3. AMLODIPINE [Concomitant]
     Active Substance: AMLODIPINE BESYLATE
  4. DOCUSATE [Concomitant]
     Active Substance: DOCUSATE
  5. POMALYST [Suspect]
     Active Substance: POMALIDOMIDE
     Indication: PLASMA CELL MYELOMA
     Dosage: 2 MG DAILY X 21 D/28 D ORALLY
     Route: 048
     Dates: start: 20140714, end: 20141004
  6. POTASSIUM + SODIUM PHOSPHATES [Concomitant]
  7. CEFTAZIDIME. [Concomitant]
     Active Substance: CEFTAZIDIME
  8. DOXORUBICIN [Concomitant]
     Active Substance: DOXORUBICIN
  9. ACETAMINOPHEN. [Concomitant]
     Active Substance: ACETAMINOPHEN
  10. HYDROCORTISONE. [Concomitant]
     Active Substance: HYDROCORTISONE
  11. BISACODYL. [Concomitant]
     Active Substance: BISACODYL
  12. HYDROCODONE ACETAMINOPHEN [Concomitant]
     Active Substance: ACETAMINOPHEN\HYDROCODONE BITARTRATE
  13. SODIUM CHLORIDE. [Concomitant]
     Active Substance: SODIUM CHLORIDE
  14. SULFAMETHOXAZOLE-TRIMETHOPRIM (SMZ) [Concomitant]
     Active Substance: SULFAMETHOXAZOLE\TRIMETHOPRIM
  15. NALOXONE [Concomitant]
     Active Substance: NALOXONE
  16. LACTULOSE. [Concomitant]
     Active Substance: LACTULOSE
  17. THALIDOMIDE [Concomitant]
     Active Substance: THALIDOMIDE
  18. ALLOPURINOL. [Concomitant]
     Active Substance: ALLOPURINOL
  19. FOLIC ACID. [Concomitant]
     Active Substance: FOLIC ACID
  20. ONDANSETRON [Concomitant]
     Active Substance: ONDANSETRON
  21. METOCLOPRAMIDE. [Concomitant]
     Active Substance: METOCLOPRAMIDE
  22. POTASSIUM CHLORIDE. [Concomitant]
     Active Substance: POTASSIUM CHLORIDE
  23. BORTEZOMIB [Concomitant]
     Active Substance: BORTEZOMIB
  24. DIPHENHYDRAMINE [Concomitant]
     Active Substance: DIPHENHYDRAMINE
  25. TEMAZEPAM. [Concomitant]
     Active Substance: TEMAZEPAM
  26. LORAZEPAM. [Concomitant]
     Active Substance: LORAZEPAM
  27. POMALYST [Suspect]
     Active Substance: POMALIDOMIDE
     Indication: PLASMA CELL MYELOMA
     Route: 048
     Dates: start: 20140415, end: 20140713
  28. OMEPRAZOLE. [Concomitant]
     Active Substance: OMEPRAZOLE

REACTIONS (9)
  - Oedema peripheral [None]
  - Constipation [None]
  - Portal vein thrombosis [None]
  - Drug resistance [None]
  - Drug ineffective [None]
  - Inferior vena cava syndrome [None]
  - Abdominal distension [None]
  - Plasmacytoma [None]
  - Abdominal mass [None]

NARRATIVE: CASE EVENT DATE: 20140921
